FAERS Safety Report 19809631 (Version 1)
Quarter: 2021Q3

REPORT INFORMATION
  Report Type: Other
  Country: CA (occurrence: CA)
  Receive Date: 20210909
  Receipt Date: 20210909
  Transmission Date: 20211014
  Serious: No
  Sender: FDA-Public Use
  Company Number: CA-ROCHE-2786268

PATIENT
  Sex: Female

DRUGS (2)
  1. CRANBERRY. [Concomitant]
     Active Substance: CRANBERRY
  2. OCREVUS [Suspect]
     Active Substance: OCRELIZUMAB
     Indication: RELAPSING-REMITTING MULTIPLE SCLEROSIS
     Dosage: 300 MG AT DAY 0 AND 14, THEN 600 MG EVERY 6 MONTH
     Route: 042
     Dates: start: 20210301

REACTIONS (2)
  - Oral herpes [Not Recovered/Not Resolved]
  - Erythema [Not Recovered/Not Resolved]
